FAERS Safety Report 12878644 (Version 3)
Quarter: 2020Q1

REPORT INFORMATION
  Report Type: Spontaneous
  Country: US (occurrence: US)
  Receive Date: 20161024
  Receipt Date: 20200316
  Transmission Date: 20200409
  Serious: No
  Sender: FDA-Public Use
  Company Number: US-PFIZER INC-2016492547

PATIENT
  Age: 77 Year
  Sex: Female

DRUGS (5)
  1. ALPHAGAN P [Concomitant]
     Active Substance: BRIMONIDINE TARTRATE
     Indication: GLAUCOMA
     Dosage: UNK, 2X/DAY
     Route: 047
  2. XALATAN [Suspect]
     Active Substance: LATANOPROST
     Indication: GLAUCOMA
     Dosage: 0.005 %, 1X/DAY (BOTH EYES, 1 DROP AT BEDTIME)
     Route: 047
  3. XALATAN [Suspect]
     Active Substance: LATANOPROST
     Dosage: UNK UNK, 1X/DAY (125MG/2.5ML 0.005%) (EVERY NIGHT AT BEDTIME)
  4. ALPHAGAN P [Concomitant]
     Active Substance: BRIMONIDINE TARTRATE
     Dosage: 0.01 %, 3X/DAY (BOTH EYES) 8AM 12PM 5PM
     Route: 047
     Dates: start: 201511
  5. XALATAN [Suspect]
     Active Substance: LATANOPROST
     Dosage: 0.005 %, 1X/DAY (BOTH EYES, 1 DROP AT BEDTIME)
     Route: 047

REACTIONS (1)
  - Eyelid function disorder [Not Recovered/Not Resolved]

NARRATIVE: CASE EVENT DATE: 20161019
